FAERS Safety Report 9607231 (Version 3)
Quarter: 2013Q4

REPORT INFORMATION
  Report Type: Spontaneous
  Country: DE (occurrence: DE)
  Receive Date: 20131009
  Receipt Date: 20131115
  Transmission Date: 20140711
  Serious: Yes (Other)
  Sender: FDA-Public Use
  Company Number: DE-AMGEN-DEUSP2013069671

PATIENT
  Age: 75 Year
  Sex: Male
  Weight: 75 kg

DRUGS (5)
  1. XGEVA [Suspect]
     Indication: METASTASES TO BONE
     Dosage: 120 MG, QMO
     Route: 058
     Dates: start: 20120126, end: 20130903
  2. CONCOR [Concomitant]
     Route: 048
  3. ASS [Concomitant]
     Dosage: 100 UNK, QD
     Route: 048
     Dates: start: 1995
  4. CAL + D [Concomitant]
     Dosage: 600 UNK, UNK
     Route: 048
     Dates: start: 20120126, end: 20130903
  5. TRENANTONE [Concomitant]
     Indication: PROSTATE CANCER
     Dosage: UNK UNK, Q3MO
     Route: 058
     Dates: start: 20080602, end: 20130201

REACTIONS (1)
  - Osteonecrosis [Not Recovered/Not Resolved]
